FAERS Safety Report 24784811 (Version 2)
Quarter: 2025Q1

REPORT INFORMATION
  Report Type: Spontaneous
  Country: CA (occurrence: CA)
  Receive Date: 20241228
  Receipt Date: 20250107
  Transmission Date: 20250408
  Serious: No
  Sender: Haleon PLC
  Company Number: US-HALEON-2219102

PATIENT
  Age: 52 Year
  Sex: Female

DRUGS (2)
  1. SENSODYNE [Suspect]
     Active Substance: POTASSIUM NITRATE\SODIUM FLUORIDE
     Indication: Dental cleaning
     Dates: start: 20241201, end: 20241226
  2. ADVIL [Suspect]
     Active Substance: IBUPROFEN
     Indication: Lip swelling

REACTIONS (12)
  - Tongue discomfort [Recovering/Resolving]
  - Neuralgia [Recovering/Resolving]
  - Swollen tongue [Recovering/Resolving]
  - Oral discomfort [Recovering/Resolving]
  - Gingival discomfort [Recovering/Resolving]
  - Hyperaesthesia [Recovering/Resolving]
  - Condition aggravated [Recovering/Resolving]
  - Anxiety [Recovering/Resolving]
  - Noninfective gingivitis [Recovering/Resolving]
  - Lip swelling [Recovering/Resolving]
  - Hyperaesthesia teeth [Recovering/Resolving]
  - Drug ineffective [Unknown]

NARRATIVE: CASE EVENT DATE: 20241209
